FAERS Safety Report 19278754 (Version 1)
Quarter: 2021Q2

REPORT INFORMATION
  Report Type: Spontaneous
  Country: US (occurrence: US)
  Receive Date: 20210520
  Receipt Date: 20210520
  Transmission Date: 20210717
  Serious: Yes (Hospitalization)
  Sender: FDA-Public Use
  Company Number: None

PATIENT
  Age: 59 Year
  Sex: Female

DRUGS (16)
  1. FOLIC ACID. [Concomitant]
     Active Substance: FOLIC ACID
  2. ACETMINOPHEN [Concomitant]
  3. GABAPENTIN. [Concomitant]
     Active Substance: GABAPENTIN
  4. METHOTREXATE. [Concomitant]
     Active Substance: METHOTREXATE
  5. PLAQUENIL [Concomitant]
     Active Substance: HYDROXYCHLOROQUINE SULFATE
  6. PREDNISONE. [Concomitant]
     Active Substance: PREDNISONE
  7. ACTEMRA [Suspect]
     Active Substance: TOCILIZUMAB
     Indication: IMMUNOLOGY TEST ABNORMAL
     Dosage: 1 SYR Q14D SQ
     Route: 058
     Dates: start: 20210330
  8. FAMOTIDINE. [Concomitant]
     Active Substance: FAMOTIDINE
  9. ATORVASTATIN [Concomitant]
     Active Substance: ATORVASTATIN
  10. LOSARTAN POT [Concomitant]
     Active Substance: LOSARTAN POTASSIUM
  11. NAPROSYN [Concomitant]
     Active Substance: NAPROXEN
  12. PANTOPRAZOLE [Concomitant]
     Active Substance: PANTOPRAZOLE
  13. DICLOFENAC GEL [Concomitant]
     Active Substance: DICLOFENAC
  14. PEG?3350/KCL SOL/SODIUM [Concomitant]
  15. CARISOPRODOL. [Concomitant]
     Active Substance: CARISOPRODOL
  16. ENALAPRIL [Concomitant]
     Active Substance: ENALAPRIL

REACTIONS (1)
  - Chest pain [None]

NARRATIVE: CASE EVENT DATE: 20210519
